FAERS Safety Report 6914325-9 (Version None)
Quarter: 2010Q3

REPORT INFORMATION
  Report Type: 
  Country: None (occurrence: None)
  Receive Date: 20100809
  Receipt Date: 20100728
  Transmission Date: 20110219
  Serious: Yes (Other)
  Sender: FDA-Public Use
  Company Number: US-PFIZER INC-2010031217

PATIENT
  Sex: Female
  Weight: 63.5 kg

DRUGS (3)
  1. GENOTROPIN [Suspect]
     Indication: GROWTH HORMONE DEFICIENCY
     Dosage: 0.4 MG, UNK
     Dates: start: 20100201
  2. GENOTROPIN [Suspect]
     Dosage: 0.6 MG, UNK
     Dates: end: 20100101
  3. CORTISONE [Suspect]
     Dosage: UNK

REACTIONS (6)
  - BLOOD GLUCOSE FLUCTUATION [None]
  - DRUG INEFFECTIVE [None]
  - HYPERGLYCAEMIA [None]
  - INJECTION SITE HAEMATOMA [None]
  - INJECTION SITE HAEMORRHAGE [None]
  - MALAISE [None]
